FAERS Safety Report 7238240-9 (Version None)
Quarter: 2011Q1

REPORT INFORMATION
  Report Type: 
  Country: None (occurrence: None)
  Receive Date: 20110121
  Receipt Date: 20110118
  Transmission Date: 20110831
  Serious: No
  Sender: FDA-Public Use
  Company Number: US-PFIZER INC-2011012365

PATIENT
  Sex: Male

DRUGS (6)
  1. PREVACID [Concomitant]
     Indication: GASTROINTESTINAL DISORDER
     Dosage: UNK
  2. PHENOBARBITAL [Concomitant]
     Indication: CONVULSION
     Dosage: UNK
  3. VALPROIC ACID [Concomitant]
     Indication: CONVULSION
     Dosage: UNK
  4. BACTRIM [Concomitant]
     Indication: ANTIBIOTIC PROPHYLAXIS
     Dosage: UNK
  5. TOPAMAX [Concomitant]
     Indication: CONVULSION
     Dosage: UNK
  6. ZARONTIN [Suspect]
     Indication: CONVULSION
     Dosage: 250 MG, 2X/DAY

REACTIONS (1)
  - HICCUPS [None]
